FAERS Safety Report 12298018 (Version 1)
Quarter: 2016Q2

REPORT INFORMATION
  Report Type: Spontaneous
  Country: US (occurrence: US)
  Receive Date: 20160422
  Receipt Date: 20160422
  Transmission Date: 20160815
  Serious: Yes (Death, Other)
  Sender: FDA-Public Use
  Company Number: US-TAKEDA-TPA2013A00909

PATIENT

DRUGS (1)
  1. ACTOS [Suspect]
     Active Substance: PIOGLITAZONE HYDROCHLORIDE
     Indication: TYPE 2 DIABETES MELLITUS
     Dosage: 30 MG, UNK
     Route: 048
     Dates: start: 200705, end: 201108

REACTIONS (5)
  - Metastases to bone [Not Recovered/Not Resolved]
  - Metastatic carcinoma of the bladder [Not Recovered/Not Resolved]
  - Metastases to spine [Not Recovered/Not Resolved]
  - Death [Fatal]
  - Metastases to lymph nodes [Not Recovered/Not Resolved]

NARRATIVE: CASE EVENT DATE: 200912
